FAERS Safety Report 23988118 (Version 1)
Quarter: 2024Q2

REPORT INFORMATION
  Report Type: Spontaneous
  Country: US (occurrence: US)
  Receive Date: 20240619
  Receipt Date: 20240619
  Transmission Date: 20240716
  Serious: Yes (Other)
  Sender: FDA-Public Use
  Company Number: US-MLMSERVICE-20240403-PI010840-00201-1

PATIENT
  Age: 59 Year
  Sex: Male

DRUGS (2)
  1. LIDOCAINE [Suspect]
     Active Substance: LIDOCAINE
     Indication: Gastrointestinal disorder
     Dosage: 1 DOSAGE FORM, FOUR TIMES/DAY (TOTAL OF 8 DOSES OF GI COCKTAILS) (VISCOUS)
     Route: 048
  2. LIDOCAINE [Suspect]
     Active Substance: LIDOCAINE
     Dosage: 1 DOSAGE FORM, FOUR TIMES/DAY
     Route: 048

REACTIONS (1)
  - Bundle branch block left [Recovered/Resolved]
